FAERS Safety Report 8997460 (Version 1)
Quarter: 2013Q1

REPORT INFORMATION
  Report Type: Spontaneous
  Country: DE (occurrence: DE)
  Receive Date: 20130104
  Receipt Date: 20130104
  Transmission Date: 20140127
  Serious: Yes (Hospitalization)
  Sender: FDA-Public Use
  Company Number: DE-UCBSA-074140

PATIENT
  Age: 55 Year
  Sex: Male
  Weight: 70 kg

DRUGS (1)
  1. VIMPAT [Suspect]
     Dosage: UNKNOWN DOSE, ORAL AND NOT ASSURED

REACTIONS (2)
  - Accidental exposure to product [Unknown]
  - Vomiting [Unknown]
